FAERS Safety Report 13083406 (Version 1)
Quarter: 2017Q1

REPORT INFORMATION
  Report Type: Spontaneous
  Country: IT (occurrence: IT)
  Receive Date: 20170104
  Receipt Date: 20170104
  Transmission Date: 20170428
  Serious: Yes (Other)
  Sender: FDA-Public Use
  Company Number: IT-BRISTOL-MYERS SQUIBB COMPANY-BMS-2016-110580

PATIENT
  Age: 94 Year
  Sex: Female

DRUGS (1)
  1. COUMADIN [Suspect]
     Active Substance: WARFARIN SODIUM
     Indication: PROPHYLAXIS
     Dosage: 1 U, PRN
     Route: 048
     Dates: start: 20140101, end: 20161211

REACTIONS (2)
  - International normalised ratio increased [Recovering/Resolving]
  - Traumatic fracture [Unknown]

NARRATIVE: CASE EVENT DATE: 20161203
